FAERS Safety Report 15507164 (Version 3)
Quarter: 2018Q4

REPORT INFORMATION
  Report Type: Spontaneous
  Country: TR (occurrence: TR)
  Receive Date: 20181016
  Receipt Date: 20181022
  Transmission Date: 20190205
  Serious: Yes (Life-Threatening, Hospitalization, Other)
  Sender: FDA-Public Use
  Company Number: TR-PFIZER INC-2018416694

PATIENT
  Age: 43 Year
  Sex: Male

DRUGS (3)
  1. PANTOPRAZOLE [Suspect]
     Active Substance: PANTOPRAZOLE
     Dosage: 1120 MG, UNK (1,120 MG IN TOTAL, 2 EMPTY BLISTER PACKS OF 14 TABLETS EACH OF PANTOPRAZOLE 40 MG)
     Route: 048
  2. DICLOFENAC POTASSIUM. [Suspect]
     Active Substance: DICLOFENAC POTASSIUM
     Dosage: 1 G IN TOTAL, UNK (2 EMPTY BLISTER PACKS OF 10 TABLETS EACH OF DICLOFENAC POTASSIUM 50 MG)
     Route: 048
  3. DOMPERIDONE [Suspect]
     Active Substance: DOMPERIDONE
     Dosage: 300 MG IN TOTAL, UNK (3 EMPTY BLISTER PACKS OF 10 TABLETS EACH OF DOMPERIDONE 10 MG )
     Route: 048

REACTIONS (3)
  - Depressed level of consciousness [Unknown]
  - Intentional overdose [Unknown]
  - Cyanosis [Unknown]
